FAERS Safety Report 9277624 (Version 1)
Quarter: 2013Q2

REPORT INFORMATION
  Report Type: Spontaneous
  Country: US (occurrence: None)
  Receive Date: 20130503
  Receipt Date: 20130503
  Transmission Date: 20140414
  Serious: No
  Sender: FDA-Public Use
  Company Number: None

PATIENT
  Sex: Female

DRUGS (1)
  1. ARIMIDEX [Suspect]

REACTIONS (8)
  - Thinking abnormal [None]
  - Disturbance in attention [None]
  - Arthralgia [None]
  - Depression [None]
  - Blood pressure increased [None]
  - Myalgia [None]
  - Asthenia [None]
  - Condition aggravated [None]
